FAERS Safety Report 22351850 (Version 2)
Quarter: 2023Q2

REPORT INFORMATION
  Report Type: Spontaneous
  Country: US (occurrence: US)
  Receive Date: 20230522
  Receipt Date: 20230523
  Transmission Date: 20230721
  Serious: No
  Sender: FDA-Public Use
  Company Number: US-JNJFOC-20230525488

PATIENT
  Sex: Female
  Weight: 118.95 kg

DRUGS (1)
  1. REMICADE [Suspect]
     Active Substance: INFLIXIMAB
     Indication: Sarcoidosis
     Route: 041

REACTIONS (5)
  - Product administration error [Unknown]
  - Drug ineffective [Unknown]
  - Product dispensing error [Unknown]
  - Off label use [Unknown]
  - Infection [Unknown]
